FAERS Safety Report 5042407-8 (Version None)
Quarter: 2006Q3

REPORT INFORMATION
  Report Type: 
  Country: None (occurrence: None)
  Receive Date: 20060705
  Receipt Date: 20060622
  Transmission Date: 20061208
  Serious: Yes (Hospitalization)
  Sender: FDA-Public Use
  Company Number: FR-RB-3495-2006

PATIENT
  Sex: Female

DRUGS (3)
  1. BUPRENORPHINE HCL [Suspect]
     Indication: DRUG THERAPY
     Dosage: EVERY 2 TO 3 HOURS (5 TIMES A DAY)
     Route: 042
     Dates: end: 20010821
  2. BUPRENORPHINE HCL [Suspect]
     Route: 048
     Dates: start: 20010821, end: 20010823
  3. DOSULEPIN HYDROCHLORIDE [Concomitant]
     Indication: DRUG USE FOR UNKNOWN INDICATION
     Route: 065
     Dates: end: 20010823

REACTIONS (6)
  - BREECH DELIVERY [None]
  - DRUG EXPOSURE DURING PREGNANCY [None]
  - MICROCEPHALY [None]
  - PREMATURE LABOUR [None]
  - PREMATURE RUPTURE OF MEMBRANES [None]
  - STRABISMUS [None]
